FAERS Safety Report 19972744 (Version 1)
Quarter: 2021Q4

REPORT INFORMATION
  Report Type: Spontaneous
  Country: US (occurrence: US)
  Receive Date: 20211019
  Receipt Date: 20211019
  Transmission Date: 20220303
  Serious: No
  Sender: FDA-Public Use
  Company Number: None

PATIENT
  Age: 70 Year
  Sex: Female
  Weight: 72 kg

DRUGS (1)
  1. XTRACARE HAND SANITIZER MOISTURIZE WITH VITAMIN E [Suspect]
     Active Substance: ALCOHOL

REACTIONS (7)
  - Application site burn [None]
  - Chemical burn [None]
  - Dry skin [None]
  - Pain [None]
  - Skin disorder [None]
  - Wound complication [None]
  - Abdominal pain upper [None]

NARRATIVE: CASE EVENT DATE: 20211019
